FAERS Safety Report 5626125-0 (Version None)
Quarter: 2008Q1

REPORT INFORMATION
  Report Type: 
  Country: None (occurrence: None)
  Receive Date: 20080214
  Receipt Date: 20080208
  Transmission Date: 20080703
  Serious: Yes (Other)
  Sender: FDA-Public Use
  Company Number: BR-ASTRAZENECA-2008UW02892

PATIENT
  Age: 47 Year
  Sex: Female
  Weight: 80 kg

DRUGS (3)
  1. NEXIUM [Suspect]
     Indication: GASTROOESOPHAGEAL REFLUX DISEASE
     Route: 048
     Dates: start: 20060601
  2. FRONTAL [Concomitant]
  3. SOMALIUM [Concomitant]

REACTIONS (4)
  - CHOLELITHIASIS [None]
  - DRUG INEFFECTIVE [None]
  - VOMITING [None]
  - WEIGHT INCREASED [None]
